FAERS Safety Report 23294686 (Version 1)
Quarter: 2023Q4

REPORT INFORMATION
  Report Type: Spontaneous
  Country: US (occurrence: None)
  Receive Date: 20231213
  Receipt Date: 20231213
  Transmission Date: 20240110
  Serious: No
  Sender: FDA-Public Use
  Company Number: None

PATIENT
  Age: 60 Year
  Sex: Female
  Weight: 63 kg

DRUGS (8)
  1. AJOVY [Suspect]
     Active Substance: FREMANEZUMAB-VFRM
     Indication: Migraine
     Dosage: OTHER QUANTITY : 1 INJECTION(S);?OTHER FREQUENCY : MONTHLY;?OTHER ROUTE : INJECTION, SUBCUTANEOUS;?
     Route: 050
  2. METOPROLOL [Concomitant]
     Active Substance: METOPROLOL
  3. GABAPENTIN [Concomitant]
     Active Substance: GABAPENTIN
  4. ELETRIPTAN [Concomitant]
     Active Substance: ELETRIPTAN
  5. NAMENDA [Concomitant]
  6. VITAMIN B2 [Concomitant]
     Active Substance: RIBOFLAVIN
  7. VITAMIN B12 [Concomitant]
     Active Substance: CYANOCOBALAMIN
  8. magneisum [Concomitant]

REACTIONS (4)
  - Hypersensitivity [None]
  - Injection site erythema [None]
  - Injection site rash [None]
  - Injection site pruritus [None]

NARRATIVE: CASE EVENT DATE: 20231211
